FAERS Safety Report 8936594 (Version 2)
Quarter: 2014Q3

REPORT INFORMATION
  Report Type: Report from Study
  Country: US (occurrence: US)
  Receive Date: 20121130
  Receipt Date: 20140901
  Transmission Date: 20150326
  Serious: Yes (Death, Hospitalization)
  Sender: FDA-Public Use
  Company Number: US-ROCHE-1126274

PATIENT
  Sex: Female
  Weight: 89 kg

DRUGS (3)
  1. AVASTIN [Suspect]
     Active Substance: BEVACIZUMAB
     Indication: BREAST CANCER METASTATIC
     Route: 042
  2. ABRAXANE [Concomitant]
     Active Substance: PACLITAXEL
  3. AVASTIN [Suspect]
     Active Substance: BEVACIZUMAB
     Indication: BREAST CANCER FEMALE
     Route: 042
     Dates: start: 20060120, end: 20060412

REACTIONS (6)
  - Metastases to central nervous system [Unknown]
  - Disease progression [Unknown]
  - Metastases to bone [Unknown]
  - Death [Fatal]
  - Off label use [Unknown]
  - Lung neoplasm [Unknown]
